FAERS Safety Report 9254986 (Version 3)
Quarter: 2013Q2

REPORT INFORMATION
  Report Type: Spontaneous
  Country: GB (occurrence: None)
  Receive Date: 20130422
  Receipt Date: 20130430
  Transmission Date: 20140414
  Serious: Yes (Other)
  Sender: FDA-Public Use
  Company Number: AUR-APL-2013-03151

PATIENT
  Age: 70 Year
  Sex: Female
  Weight: 67.58 kg

DRUGS (13)
  1. RAMIPRIL (RAMIPRIL) [Suspect]
     Indication: PRODUCT USED FOR UNKNOWN INDICATION
     Dates: start: 20130403
  2. ADCAL (CARBAZOCHROME) [Concomitant]
  3. BENDROFLUMETHIAZIDE (BENDROFLUMETHIAZIDE) [Concomitant]
  4. BETAHISTINE (BETAHISTINE) [Concomitant]
  5. CINNARIZINE (CINNARIZINE) [Concomitant]
  6. LAXIDO (MACROGOL 3350) [Concomitant]
  7. LIDOCAINE HYDROCHLORIDE (LIDOCAINE HYDROCHLORIDE) [Concomitant]
  8. LOSARTAN (LOSARTAN) [Concomitant]
  9. OMEPRAZOLE (OMEPRAZOLE) [Concomitant]
  10. PIROXICAM (PIROXICAM) [Concomitant]
  11. PROPRANOLOL (PROPRANOLOL) [Concomitant]
  12. RALOXIFENE (RALOXIFENE) [Concomitant]
  13. TRIAMCINOLONE ACETONIDE (TRIAMCINOLONE ACETONIDE) [Concomitant]

REACTIONS (3)
  - Blister [None]
  - Lip swelling [None]
  - Hypersensitivity [None]
